FAERS Safety Report 12165074 (Version 1)
Quarter: 2016Q1

REPORT INFORMATION
  Report Type: Report from Study
  Country: US (occurrence: US)
  Receive Date: 20160309
  Receipt Date: 20160309
  Transmission Date: 20160526
  Serious: No
  Sender: FDA-Public Use
  Company Number: US-ABBVIE-15P-163-1382613-00

PATIENT
  Age: 31 Year
  Sex: Female

DRUGS (3)
  1. BROMOCRIPTINE [Concomitant]
     Active Substance: BROMOCRIPTINE
     Indication: PITUITARY TUMOUR BENIGN
     Route: 048
     Dates: start: 20150101
  2. PHENTERMINE. [Concomitant]
     Active Substance: PHENTERMINE
     Indication: DECREASED APPETITE
     Route: 048
     Dates: start: 201505
  3. LUPRON DEPOT [Suspect]
     Active Substance: LEUPROLIDE ACETATE
     Indication: ENDOMETRIOSIS
     Route: 065
     Dates: start: 20150422

REACTIONS (6)
  - Abdominal pain lower [Not Recovered/Not Resolved]
  - Activities of daily living impaired [Unknown]
  - Drug ineffective [Not Recovered/Not Resolved]
  - Insomnia [Unknown]
  - Pain [Unknown]
  - Pelvic pain [Not Recovered/Not Resolved]

NARRATIVE: CASE EVENT DATE: 20150424
